FAERS Safety Report 24868553 (Version 1)
Quarter: 2025Q1

REPORT INFORMATION
  Report Type: Spontaneous
  Country: US (occurrence: None)
  Receive Date: 20250116
  Receipt Date: 20250116
  Transmission Date: 20250408
  Serious: Yes (Other)
  Sender: FDA-CTU
  Company Number: None

PATIENT
  Age: 52 Year
  Sex: Male

DRUGS (3)
  1. DIETARY SUPPLEMENT [Suspect]
     Active Substance: DIETARY SUPPLEMENT
     Indication: Arthralgia
  2. DEXAMETHASONE [Suspect]
     Active Substance: DEXAMETHASONE
  3. DICLOFENAC [Suspect]
     Active Substance: DICLOFENAC

REACTIONS (4)
  - Glycosylated haemoglobin increased [None]
  - Sepsis [None]
  - Immunodeficiency [None]
  - Hepatic enzyme increased [None]

NARRATIVE: CASE EVENT DATE: 20250114
